FAERS Safety Report 9953046 (Version 1)
Quarter: 2014Q1

REPORT INFORMATION
  Report Type: Report from Study
  Country: US (occurrence: US)
  Receive Date: 20140304
  Receipt Date: 20140304
  Transmission Date: 20141002
  Serious: No
  Sender: FDA-Public Use
  Company Number: US-ABBVIE-13P-163-1075261-00

PATIENT
  Age: 66 Year
  Sex: Female

DRUGS (6)
  1. HUMIRA [Suspect]
     Indication: PSORIATIC ARTHROPATHY
  2. LEVOTHYROXINE [Concomitant]
     Indication: THYROID DISORDER
  3. NEXIUM [Concomitant]
     Indication: GASTROOESOPHAGEAL REFLUX DISEASE
  4. POTASSIUM [Concomitant]
     Indication: OEDEMA PERIPHERAL
  5. FUROSEMIDE [Concomitant]
     Indication: OEDEMA PERIPHERAL
  6. FLEXERIL [Concomitant]
     Indication: FIBROMYALGIA

REACTIONS (1)
  - Injection site pain [Not Recovered/Not Resolved]
